FAERS Safety Report 24171232 (Version 1)
Quarter: 2024Q3

REPORT INFORMATION
  Report Type: Spontaneous
  Country: US (occurrence: None)
  Receive Date: 20240805
  Receipt Date: 20240805
  Transmission Date: 20241016
  Serious: No
  Sender: Public
  Company Number: None

PATIENT
  Age: 63 Year
  Sex: Female

DRUGS (1)
  1. HUMIRA [Suspect]
     Active Substance: ADALIMUMAB
     Indication: Pyoderma gangrenosum
     Dosage: FREQUENCY : AS DIRECTED;?
     Route: 058
     Dates: start: 202406

REACTIONS (3)
  - Nodule [None]
  - Influenza like illness [None]
  - Swelling [None]
